FAERS Safety Report 8476599-5 (Version None)
Quarter: 2012Q2

REPORT INFORMATION
  Report Type: 
  Country: None (occurrence: None)
  Receive Date: 20120628
  Receipt Date: 20120621
  Transmission Date: 20120825
  Serious: Yes (Other)
  Sender: FDA-Public Use
  Company Number: US-PFIZER INC-2012085157

PATIENT
  Sex: Female
  Weight: 94.89 kg

DRUGS (11)
  1. PAROXETINE [Concomitant]
     Dosage: 20 MG, 1X/DAY
  2. VITAMIN D [Concomitant]
     Dosage: 400 UNIT CAPSULE, 2 CAPSULES ONCE DAILY
  3. DILANTIN KAPSEAL [Suspect]
     Dosage: 100 MG, 3X/DAY
     Route: 048
     Dates: start: 20111017
  4. FISH OIL [Concomitant]
     Dosage: 1000 MG, 1X/DAY
  5. HYDROXYZINE [Concomitant]
     Dosage: 25 MG, 1/2 TO 1 TABLET AT BEDTIME AS NEEDED
  6. OMEPRAZOLE [Concomitant]
     Dosage: 40 MG, 1 DELAYED RELEASE CAPSULE 1X/DAY
  7. VITAMIN E [Concomitant]
     Dosage: 400 UNIT TABLET, 1 TABLET ONCE A DAY
  8. VITAMIN B COMPLEX CAP [Concomitant]
     Dosage: UNK, 1 TABLET, 1X/DAY
  9. IRON [Concomitant]
     Dosage: 27 MG, TAKE 1 TABLET 1X/DAY
  10. ESTROVEN [Concomitant]
     Dosage: 400 MCG, 1X/DAY
  11. ASCORBIC ACID [Concomitant]
     Dosage: 1000 MG, 1X/DAY

REACTIONS (13)
  - DRUG LEVEL DECREASED [None]
  - DEPRESSION [None]
  - FATIGUE [None]
  - OVERWEIGHT [None]
  - CONVULSION [None]
  - VIITH NERVE PARALYSIS [None]
  - HEADACHE [None]
  - INSOMNIA [None]
  - MALAISE [None]
  - WEIGHT INCREASED [None]
  - ASTHMA [None]
  - ANXIETY [None]
  - MOOD ALTERED [None]
